FAERS Safety Report 8050654-6 (Version None)
Quarter: 2012Q1

REPORT INFORMATION
  Report Type: 
  Country: None (occurrence: None)
  Receive Date: 20120117
  Receipt Date: 20120110
  Transmission Date: 20120608
  Serious: Yes (Hospitalization)
  Sender: FDA-Public Use
  Company Number: US-US-EMD SERONO, INC.-7106507

PATIENT
  Sex: Female

DRUGS (1)
  1. REBIF [Suspect]
     Indication: PRODUCT USED FOR UNKNOWN INDICATION
     Route: 058
     Dates: start: 20110708

REACTIONS (5)
  - VISION BLURRED [None]
  - PARAESTHESIA [None]
  - URINARY TRACT INFECTION [None]
  - MUSCULAR WEAKNESS [None]
  - HYPOAESTHESIA [None]
